FAERS Safety Report 23800644 (Version 1)
Quarter: 2024Q2

REPORT INFORMATION
  Report Type: Other
  Country: US (occurrence: None)
  Receive Date: 20240430
  Receipt Date: 20240430
  Transmission Date: 20240716
  Serious: Yes (Hospitalization, Other)
  Sender: FDA-Public Use
  Company Number: US-ROCHE-2434675

PATIENT
  Age: 73 Year
  Sex: Female
  Weight: 71.732 kg

DRUGS (27)
  1. OCREVUS [Suspect]
     Active Substance: OCRELIZUMAB
     Indication: Relapsing-remitting multiple sclerosis
     Dosage: ONGOING: YES
     Route: 042
     Dates: start: 20190620
  2. OCREVUS [Suspect]
     Active Substance: OCRELIZUMAB
     Dosage: ONGOING: YES
     Route: 042
     Dates: start: 20191230
  3. OCREVUS [Suspect]
     Active Substance: OCRELIZUMAB
     Dosage: ONGOING: YES
     Route: 042
     Dates: start: 201906
  4. OCREVUS [Suspect]
     Active Substance: OCRELIZUMAB
     Route: 042
     Dates: start: 201904
  5. OCREVUS [Suspect]
     Active Substance: OCRELIZUMAB
     Dosage: LAST DOSE: 29/JUN/2021
     Route: 042
     Dates: start: 202001, end: 20210629
  6. GABAPENTIN [Concomitant]
     Active Substance: GABAPENTIN
     Indication: Neuralgia
     Route: 048
  7. METOPROLOL TARTRATE [Concomitant]
     Active Substance: METOPROLOL TARTRATE
     Indication: Hypertension
  8. BACLOFEN [Concomitant]
     Active Substance: BACLOFEN
     Dates: start: 201906
  9. PREMARIN [Concomitant]
     Active Substance: ESTROGENS, CONJUGATED
     Route: 061
  10. FLONASE [Concomitant]
     Active Substance: FLUTICASONE PROPIONATE
  11. TYLENOL EXTRA STRENGTH [Concomitant]
     Active Substance: ACETAMINOPHEN
  12. CANNABIDIOL\HERBALS [Concomitant]
     Active Substance: CANNABIDIOL\HERBALS
     Indication: Pain
  13. ZANTAC [Concomitant]
     Active Substance: RANITIDINE HYDROCHLORIDE
  14. FLUTICASONE [Concomitant]
     Active Substance: FLUTICASONE
     Indication: Nasal dryness
     Dosage: 2 SPRAYS EACH NOSTRIL
     Dates: start: 2000
  15. ACETAMINOPHEN [Concomitant]
     Active Substance: ACETAMINOPHEN
     Indication: Pain
     Route: 048
  16. ASPIRIN [Concomitant]
     Active Substance: ASPIRIN
     Indication: Osteoarthritis
     Route: 048
     Dates: start: 2013
  17. BENADRYL [Concomitant]
     Active Substance: DIPHENHYDRAMINE HYDROCHLORIDE
     Indication: Hypersensitivity
     Dosage: 25-50 MG A DAY; ONGOING: YES
     Route: 048
  18. CANNABIS SATIVA SEED OIL\HERBALS [Concomitant]
     Active Substance: CANNABIS SATIVA SEED OIL\HERBALS
     Dosage: 0.25-0.5 DROPPERFUL UNDER THE TONGUE 1-2 TIMES. INTERVAL 1 DAYS; ONGOING: YES
     Route: 060
  19. METOPROLOL TARTRATE [Concomitant]
     Active Substance: METOPROLOL TARTRATE
     Indication: Hypertension
     Dosage: ONGOING: YES
     Route: 048
  20. FLEXERIL [Concomitant]
     Active Substance: CYCLOBENZAPRINE HYDROCHLORIDE
     Indication: Muscle spasms
  21. NORCO [Concomitant]
     Active Substance: ACETAMINOPHEN\HYDROCODONE BITARTRATE
  22. PERINDOPRIL [Concomitant]
     Active Substance: PERINDOPRIL
  23. AMLODIPINE [Concomitant]
     Active Substance: AMLODIPINE BESYLATE
  24. HYDROCODONE [Concomitant]
     Active Substance: HYDROCODONE
  25. CORTISONE [Concomitant]
     Active Substance: CORTISONE
     Indication: Arthritis
  26. LYRICA [Concomitant]
     Active Substance: PREGABALIN
  27. ROBAXIN [Concomitant]
     Active Substance: METHOCARBAMOL

REACTIONS (43)
  - Bone cyst [Not Recovered/Not Resolved]
  - Cataract [Recovered/Resolved]
  - Mental disorder [Not Recovered/Not Resolved]
  - Cardiovascular disorder [Not Recovered/Not Resolved]
  - Pain [Recovered/Resolved]
  - Periorbital haemorrhage [Recovered/Resolved]
  - Fall [Unknown]
  - Contusion [Recovered/Resolved]
  - Accident [Unknown]
  - Blindness [Not Recovered/Not Resolved]
  - Head injury [Recovered/Resolved]
  - Muscle spasms [Not Recovered/Not Resolved]
  - Cyst [Not Recovered/Not Resolved]
  - Asthenia [Recovering/Resolving]
  - Peroneal nerve palsy [Recovered/Resolved]
  - Arthropathy [Recovering/Resolving]
  - Hypokinesia [Recovering/Resolving]
  - Gastritis [Recovered/Resolved]
  - Balance disorder [Not Recovered/Not Resolved]
  - Body temperature decreased [Not Recovered/Not Resolved]
  - Gait disturbance [Not Recovered/Not Resolved]
  - Fibromyalgia [Not Recovered/Not Resolved]
  - Arthritis [Not Recovered/Not Resolved]
  - Dizziness [Not Recovered/Not Resolved]
  - Fatigue [Not Recovered/Not Resolved]
  - Dysgraphia [Not Recovered/Not Resolved]
  - Insomnia [Unknown]
  - Decreased appetite [Recovered/Resolved]
  - Extremity contracture [Not Recovered/Not Resolved]
  - Osteoporosis [Not Recovered/Not Resolved]
  - Migraine [Recovered/Resolved]
  - Bedridden [Not Recovered/Not Resolved]
  - Depression [Not Recovered/Not Resolved]
  - Carpal tunnel syndrome [Not Recovered/Not Resolved]
  - Off label use [Unknown]
  - Crohn^s disease [Unknown]
  - Illness [Unknown]
  - Asthma [Unknown]
  - Eczema [Unknown]
  - Musculoskeletal stiffness [Not Recovered/Not Resolved]
  - Muscular weakness [Not Recovered/Not Resolved]
  - COVID-19 [Unknown]
  - Nausea [Recovered/Resolved]

NARRATIVE: CASE EVENT DATE: 20191001
